FAERS Safety Report 9612791 (Version 2)
Quarter: 2016Q1

REPORT INFORMATION
  Report Type: Spontaneous
  Country: US (occurrence: US)
  Receive Date: 20131010
  Receipt Date: 20160307
  Transmission Date: 20160526
  Serious: Yes (Other)
  Sender: FDA-Public Use
  Company Number: US-ROCHE-1286261

PATIENT
  Age: 51 Year
  Sex: Male

DRUGS (5)
  1. PEGINTERFERON ALFA-2B [Suspect]
     Active Substance: PEGINTERFERON ALFA-2B
     Indication: CHRONIC HEPATITIS C
     Route: 065
     Dates: start: 2001, end: 2002
  2. AMANTADINE [Suspect]
     Active Substance: AMANTADINE
     Indication: CHRONIC HEPATITIS C
     Route: 065
     Dates: start: 2001, end: 2002
  3. RIBAVIRIN. [Suspect]
     Active Substance: RIBAVIRIN
     Indication: CHRONIC HEPATITIS C
     Route: 065
     Dates: start: 1998, end: 1999
  4. RIBAVIRIN. [Suspect]
     Active Substance: RIBAVIRIN
     Route: 065
     Dates: start: 2001, end: 2002
  5. AMANTADINE [Suspect]
     Active Substance: AMANTADINE
     Route: 065
     Dates: start: 2009

REACTIONS (1)
  - Parkinson^s disease [Unknown]
